FAERS Safety Report 20365398 (Version 1)
Quarter: 2022Q1

REPORT INFORMATION
  Report Type: Report from Study
  Country: BR (occurrence: BR)
  Receive Date: 20220122
  Receipt Date: 20220122
  Transmission Date: 20220423
  Serious: Yes (Other)
  Sender: FDA-Public Use
  Company Number: BR-NOVARTISPH-NVSC2022BR010930

PATIENT
  Sex: Female

DRUGS (7)
  1. COSENTYX [Suspect]
     Active Substance: SECUKINUMAB
     Indication: Ankylosing spondylitis
     Dosage: 150 MG
     Route: 065
     Dates: start: 20201002
  2. COSENTYX [Suspect]
     Active Substance: SECUKINUMAB
     Dosage: UNK
     Route: 065
     Dates: start: 20220103
  3. BUPROPION [Concomitant]
     Active Substance: BUPROPION
     Indication: Anxiolytic therapy
     Dosage: 150 MG (IN THE MORNING)
     Route: 065
  4. BUPROPION [Concomitant]
     Active Substance: BUPROPION
     Indication: Depression
  5. LAMOTRIGINE [Concomitant]
     Active Substance: LAMOTRIGINE
     Indication: Depression
     Dosage: 50 MG (AT NIGHT)
     Route: 065
  6. DULOXETINE HYDROCHLORIDE [Concomitant]
     Active Substance: DULOXETINE HYDROCHLORIDE
     Indication: Product used for unknown indication
     Dosage: UNK, QD (IN THE MORNING)
     Route: 065
  7. ARCOXIA [Concomitant]
     Active Substance: ETORICOXIB
     Indication: Pain
     Dosage: UNK
     Route: 065

REACTIONS (22)
  - Tuberculosis [Unknown]
  - Gait disturbance [Unknown]
  - Gait inability [Unknown]
  - Arthropathy [Unknown]
  - Arthritis [Not Recovered/Not Resolved]
  - Malaise [Unknown]
  - Conjunctivitis [Unknown]
  - Eye irritation [Unknown]
  - Lacrimation increased [Unknown]
  - Eye discharge [Unknown]
  - Dry eye [Unknown]
  - Eye inflammation [Unknown]
  - Eye allergy [Unknown]
  - Influenza [Unknown]
  - Dysstasia [Unknown]
  - Asthenia [Unknown]
  - Feeling abnormal [Unknown]
  - Hypersensitivity [Unknown]
  - Contraindicated product administered [Unknown]
  - Pain in extremity [Unknown]
  - Pelvic pain [Unknown]
  - Condition aggravated [Unknown]
